FAERS Safety Report 8933629 (Version 3)
Quarter: 2020Q3

REPORT INFORMATION
  Report Type: Spontaneous
  Country: None (occurrence: FR)
  Receive Date: 20121129
  Receipt Date: 20200709
  Transmission Date: 20201103
  Serious: Yes (Other)
  Sender: FDA-Public Use
  Company Number: FR-SANOFI-AVENTIS-2012SA086172

PATIENT

DRUGS (17)
  1. MYCOPHENOLATE MOFETIL. [Suspect]
     Active Substance: MYCOPHENOLATE MOFETIL
     Indication: IMMUNOSUPPRESSION
     Dosage: UNK UNK,UNK
     Route: 065
  2. EVEROLIMUS. [Interacting]
     Active Substance: EVEROLIMUS
     Dosage: 5.25 MG,QD
     Route: 065
  3. RIFABUTIN. [Suspect]
     Active Substance: RIFABUTIN
     Indication: PULMONARY TUBERCULOSIS
     Dosage: 450 MG,QD
  4. EVEROLIMUS. [Interacting]
     Active Substance: EVEROLIMUS
     Indication: IMMUNOSUPPRESSION
     Dosage: .5 MG,BID
     Route: 065
  5. ETHAMBUTOL [Concomitant]
     Active Substance: ETHAMBUTOL HYDROCHLORIDE
     Dosage: 1200 MG/DAY
     Dates: start: 200912
  6. RIFAMPICIN [Suspect]
     Active Substance: RIFAMPIN
     Indication: PULMONARY TUBERCULOSIS
     Dosage: 600 MG,QD
     Route: 065
  7. ISONIAZID. [Suspect]
     Active Substance: ISONIAZID
     Dosage: 250 MG PER DAY
  8. PYRAZINAMIDE. [Concomitant]
     Active Substance: PYRAZINAMIDE
     Indication: PULMONARY TUBERCULOSIS
     Dosage: 1500 MG,QD
  9. ETHAMBUTOL [Concomitant]
     Active Substance: ETHAMBUTOL HYDROCHLORIDE
     Indication: PULMONARY TUBERCULOSIS
     Dosage: 1200 MG,QD
  10. MYCOPHENOLATE MOFETIL. [Suspect]
     Active Substance: MYCOPHENOLATE MOFETIL
     Dosage: UNK UNK,UNK
     Route: 065
  11. OSELTAMIVIR [Concomitant]
     Active Substance: OSELTAMIVIR
     Indication: INFLUENZA A VIRUS TEST POSITIVE
     Dosage: UNK
  12. ISONIAZID. [Suspect]
     Active Substance: ISONIAZID
     Indication: PULMONARY TUBERCULOSIS
     Dosage: 250 MG,QD
  13. EVEROLIMUS. [Interacting]
     Active Substance: EVEROLIMUS
     Dosage: 8 MG,TID
     Route: 065
  14. SORAFENIB [Suspect]
     Active Substance: SORAFENIB
     Indication: HEPATIC CANCER METASTATIC
     Dosage: UNK UKN, UNK
     Route: 048
     Dates: start: 200902, end: 200911
  15. MYCOPHENOLATE MOFETIL. [Suspect]
     Active Substance: MYCOPHENOLATE MOFETIL
     Route: 065
  16. OSELTAMIVIR [Concomitant]
     Active Substance: OSELTAMIVIR
     Route: 065
     Dates: start: 200911
  17. PYRAZINAMIDE. [Concomitant]
     Active Substance: PYRAZINAMIDE
     Dosage: 1500 MG PER DAY
     Route: 065
     Dates: start: 200912

REACTIONS (5)
  - Pneumonia [Unknown]
  - Hepatic enzyme increased [Recovering/Resolving]
  - Drug interaction [Unknown]
  - Immunosuppressant drug level decreased [Recovering/Resolving]
  - Pancytopenia [Unknown]
